FAERS Safety Report 8942690 (Version 2)
Quarter: 2013Q3

REPORT INFORMATION
  Report Type: Spontaneous
  Country: GB (occurrence: GB)
  Receive Date: 20121204
  Receipt Date: 20130927
  Transmission Date: 20140515
  Serious: Yes (Death, Hospitalization)
  Sender: FDA-Public Use
  Company Number: GB-PFIZER INC-2012297303

PATIENT
  Age: 59 Year
  Sex: Male

DRUGS (11)
  1. EPIRUBICIN HCL [Suspect]
  2. OXALIPLATIN [Suspect]
  3. CLOZARIL [Suspect]
     Indication: SCHIZOPHRENIA
     Dosage: UNK
     Route: 048
     Dates: start: 20010701, end: 20120718
  4. CLOZARIL [Suspect]
     Route: 048
     Dates: start: 20120721
  5. CLOZARIL [Suspect]
     Dosage: 150 MG, DAILY
     Route: 048
  6. CAPECITABINE [Suspect]
  7. HALOPERIDOL [Concomitant]
     Indication: SCHIZOPHRENIA
     Dosage: 5 MG, DAILY
     Route: 048
  8. PROCYCLIDINE [Concomitant]
     Indication: EXTRAPYRAMIDAL DISORDER
     Dosage: 10 MG, UNK
     Route: 048
  9. THIAMIN [Concomitant]
     Indication: VOMITING
     Dosage: 100 MG
     Route: 048
  10. DALIVIT [Concomitant]
     Indication: VOMITING
     Dosage: 0.6 ML, 1X/DAY
     Route: 048
  11. MOVICARD [Concomitant]
     Indication: GASTRIC CANCER
     Dosage: UNK
     Route: 048

REACTIONS (11)
  - Second primary malignancy [Fatal]
  - Adenocarcinoma gastric [Fatal]
  - Obstruction gastric [Fatal]
  - Vomiting [Recovered/Resolved with Sequelae]
  - Diarrhoea [Recovered/Resolved with Sequelae]
  - Malaise [Unknown]
  - Weight decreased [Recovered/Resolved with Sequelae]
  - Differential white blood cell count abnormal [Unknown]
  - Platelet count decreased [Unknown]
  - Neutrophil count decreased [Unknown]
  - White blood cell count increased [Unknown]
